FAERS Safety Report 9602180 (Version 6)
Quarter: 2015Q1

REPORT INFORMATION
  Report Type: Spontaneous
  Country: US (occurrence: US)
  Receive Date: 20131007
  Receipt Date: 20150210
  Transmission Date: 20150721
  Serious: Yes (Hospitalization, Other)
  Sender: FDA-Public Use
  Company Number: US-009507513-1310USA000300

PATIENT
  Sex: Female
  Weight: 73.16 kg

DRUGS (12)
  1. VITAMIN B (UNSPECIFIED) [Concomitant]
     Dosage: 5000 MG, QD
     Dates: start: 1970
  2. ALENDRONATE SODIUM. [Suspect]
     Active Substance: ALENDRONATE SODIUM
     Indication: OSTEOPOROSIS
     Dosage: 70 MG, QW
     Route: 048
     Dates: start: 20080310, end: 201401
  3. CENTRUM SILVER [Concomitant]
     Active Substance: VITAMINS
     Dosage: UNK, QD
     Dates: start: 1970
  4. VITAMIN D [Concomitant]
     Active Substance: CHOLECALCIFEROL
     Dosage: 2000 IU, QD
     Dates: start: 1970
  5. VITAMIN E [Concomitant]
     Active Substance: .ALPHA.-TOCOPHEROL
     Dosage: 400 IU, QD
     Dates: start: 1970
  6. CALCIUM CARBONATE. [Concomitant]
     Active Substance: CALCIUM CARBONATE
  7. FOSAMAX [Suspect]
     Active Substance: ALENDRONATE SODIUM
     Indication: OSTEOPOROSIS
     Dosage: 70 MG, QW
     Route: 048
     Dates: start: 20040225
  8. GLUCOSAMINE [Concomitant]
     Active Substance: GLUCOSAMINE
  9. ALENDRONATE SODIUM. [Suspect]
     Active Substance: ALENDRONATE SODIUM
     Dosage: 70 MG, QD
     Route: 048
  10. ASCORBIC ACID. [Concomitant]
     Active Substance: ASCORBIC ACID
     Dosage: 500 MG, QD
     Dates: start: 1970
  11. BENICAR [Concomitant]
     Active Substance: OLMESARTAN MEDOXOMIL
  12. METHOTREXATE [Concomitant]
     Active Substance: METHOTREXATE
     Indication: RHEUMATOID ARTHRITIS

REACTIONS (13)
  - Intramedullary rod insertion [Unknown]
  - Device breakage [Unknown]
  - Folate deficiency [Unknown]
  - Left ventricular hypertrophy [Unknown]
  - Osteoarthritis [Unknown]
  - Salpingo-oophorectomy bilateral [Unknown]
  - Aortic arteriosclerosis [Unknown]
  - Skin lesion [Unknown]
  - Rash [Unknown]
  - Acute kidney injury [Recovered/Resolved]
  - Anaemia [Unknown]
  - Femur fracture [Unknown]
  - Constipation [Unknown]

NARRATIVE: CASE EVENT DATE: 20090315
